FAERS Safety Report 5118411-8 (Version None)
Quarter: 2006Q3

REPORT INFORMATION
  Report Type: 
  Country: None (occurrence: None)
  Receive Date: 20060927
  Receipt Date: 20060913
  Transmission Date: 20061208
  Serious: Yes (Hospitalization)
  Sender: FDA-Public Use
  Company Number: CERZ-11325

PATIENT
  Age: 20 Month
  Sex: Female
  Weight: 8.5 kg

DRUGS (7)
  1. CEREZYME [Suspect]
     Indication: GAUCHER'S DISEASE
     Dosage: 400 UNITS Q2WKS IV
     Route: 042
     Dates: start: 20060801
  2. FERROUS SULFATE TAB [Concomitant]
  3. FOLIC ACID [Concomitant]
  4. VITAMIN A [Concomitant]
  5. VITAMIN E [Concomitant]
  6. ASCORBIC ACID [Concomitant]
  7. VITAMIN B-12 [Concomitant]

REACTIONS (5)
  - ANOREXIA [None]
  - BRONCHIOLITIS [None]
  - DECREASED ACTIVITY [None]
  - PNEUMONIA [None]
  - WHITE BLOOD CELL COUNT DECREASED [None]
